FAERS Safety Report 18882577 (Version 1)
Quarter: 2021Q1

REPORT INFORMATION
  Report Type: Spontaneous
  Country: US (occurrence: US)
  Receive Date: 20210212
  Receipt Date: 20210212
  Transmission Date: 20210420
  Serious: Yes (Other)
  Sender: FDA-Public Use
  Company Number: US-JNJFOC-20210216947

PATIENT
  Age: 53 Year
  Sex: Male

DRUGS (1)
  1. INVOKANA [Suspect]
     Active Substance: CANAGLIFLOZIN
     Indication: PRODUCT USED FOR UNKNOWN INDICATION
     Route: 048

REACTIONS (6)
  - Dyspnoea [Unknown]
  - Renal pain [Unknown]
  - Hepatic function abnormal [Unknown]
  - Myocardial infarction [Unknown]
  - Unevaluable event [Unknown]
  - Fatigue [Unknown]

NARRATIVE: CASE EVENT DATE: 20210208
